FAERS Safety Report 9525188 (Version 1)
Quarter: 2013Q3

REPORT INFORMATION
  Report Type: Spontaneous
  Country: US (occurrence: US)
  Receive Date: 20130916
  Receipt Date: 20130916
  Transmission Date: 20140515
  Serious: No
  Sender: FDA-Public Use
  Company Number: US-BAYER-2013-107277

PATIENT
  Age: 62 Year
  Sex: Female

DRUGS (1)
  1. FINACEA [Suspect]
     Indication: ROSACEA
     Dosage: UNK UNK, BID
     Route: 061
     Dates: start: 201210

REACTIONS (2)
  - Hirsutism [Not Recovered/Not Resolved]
  - Application site pain [Recovered/Resolved]
